FAERS Safety Report 9106982 (Version 4)
Quarter: 2013Q3

REPORT INFORMATION
  Report Type: Spontaneous
  Country: US (occurrence: US)
  Receive Date: 20130221
  Receipt Date: 20130930
  Transmission Date: 20140515
  Serious: Yes (Other)
  Sender: FDA-Public Use
  Company Number: US-BAYER-2013-019688

PATIENT
  Age: 32 Year
  Sex: Female
  Weight: 69.39 kg

DRUGS (4)
  1. MIRENA [Suspect]
     Indication: CONTRACEPTION
     Dosage: 20 MCG/24HR, CONT
     Route: 015
     Dates: start: 20110503, end: 201301
  2. ALBUTEROL [Concomitant]
     Dosage: UNK, PRN
  3. PULMICORT [Concomitant]
     Dosage: UNK
  4. MISOPROSTOL [Concomitant]
     Dosage: UNK

REACTIONS (7)
  - Pregnancy with contraceptive device [None]
  - Device expulsion [None]
  - Drug ineffective [None]
  - Abortion spontaneous [None]
  - Medical device discomfort [Recovered/Resolved]
  - Device issue [None]
  - Genital haemorrhage [None]
